FAERS Safety Report 7342294-9 (Version None)
Quarter: 2011Q1

REPORT INFORMATION
  Report Type: 
  Country: None (occurrence: None)
  Receive Date: 20110310
  Receipt Date: 20110302
  Transmission Date: 20110831
  Serious: No
  Sender: FDA-Public Use
  Company Number: US-BIOGENIDEC-2011BI001393

PATIENT
  Sex: Female

DRUGS (1)
  1. TYSABRI [Suspect]
     Indication: MULTIPLE SCLEROSIS
     Route: 042
     Dates: start: 20061221, end: 20101208

REACTIONS (8)
  - DIABETES MELLITUS [None]
  - ARTHRALGIA [None]
  - FEELING ABNORMAL [None]
  - BLOOD GLUCOSE INCREASED [None]
  - BALANCE DISORDER [None]
  - BACK PAIN [None]
  - PAIN IN EXTREMITY [None]
  - MEMORY IMPAIRMENT [None]
